FAERS Safety Report 9347762 (Version 1)
Quarter: 2013Q2

REPORT INFORMATION
  Report Type: Spontaneous
  Country: US (occurrence: None)
  Receive Date: 20130612
  Receipt Date: 20130612
  Transmission Date: 20140414
  Serious: Yes (Death)
  Sender: FDA-Public Use
  Company Number: None

PATIENT
  Age: 56 Year
  Sex: Male
  Weight: 90.81 kg

DRUGS (1)
  1. DOCETAXEL 80 MG HOSPIRA [Suspect]
     Indication: NON-SMALL CELL LUNG CANCER METASTATIC
     Dosage: 75 MG/M2  EVERY 21 DAYS  IV
     Route: 042
     Dates: start: 20130507, end: 20130507

REACTIONS (4)
  - Performance status decreased [None]
  - Malignant neoplasm progression [None]
  - Non-small cell lung cancer [None]
  - Multi-organ failure [None]
